FAERS Safety Report 19258216 (Version 2)
Quarter: 2021Q2

REPORT INFORMATION
  Report Type: Spontaneous
  Country: VE (occurrence: VE)
  Receive Date: 20210514
  Receipt Date: 20210524
  Transmission Date: 20210717
  Serious: Yes (Other)
  Sender: FDA-Public Use
  Company Number: NVSC2021VE027737

PATIENT
  Age: 44 Year
  Sex: Female

DRUGS (2)
  1. GLIVEC [Suspect]
     Active Substance: IMATINIB MESYLATE
     Indication: CHRONIC MYELOID LEUKAEMIA
     Dosage: 400 MG, QD (4 X 100 MG)
     Route: 048
  2. GLIVEC [Suspect]
     Active Substance: IMATINIB MESYLATE
     Dosage: 600 MG
     Route: 065

REACTIONS (15)
  - Musculoskeletal chest pain [Unknown]
  - Chronic myeloid leukaemia transformation [Unknown]
  - Discomfort [Not Recovered/Not Resolved]
  - Headache [Unknown]
  - Food intolerance [Unknown]
  - Influenza [Unknown]
  - Abdominal pain [Unknown]
  - White blood cell count increased [Unknown]
  - White blood cell count decreased [Unknown]
  - Chest discomfort [Unknown]
  - Leukopenia [Unknown]
  - Blast cells present [Unknown]
  - Vomiting [Not Recovered/Not Resolved]
  - Malaise [Not Recovered/Not Resolved]
  - Nausea [Not Recovered/Not Resolved]
